FAERS Safety Report 6466457-X (Version None)
Quarter: 2009Q4

REPORT INFORMATION
  Report Type: 
  Country: None (occurrence: None)
  Receive Date: 20091202
  Receipt Date: 20081110
  Transmission Date: 20100525
  Serious: No
  Sender: FDA-Public Use
  Company Number: US-AMGEN-KDL318338

PATIENT
  Sex: Female

DRUGS (1)
  1. ENBREL [Suspect]
     Indication: RHEUMATOID ARTHRITIS
     Route: 058

REACTIONS (8)
  - CHILLS [None]
  - DECREASED APPETITE [None]
  - FEELING ABNORMAL [None]
  - FEELING COLD [None]
  - MALAISE [None]
  - MIGRAINE [None]
  - OROPHARYNGEAL PAIN [None]
  - SINUS HEADACHE [None]
